FAERS Safety Report 6208323-0 (Version None)
Quarter: 2009Q2

REPORT INFORMATION
  Report Type: 
  Country: None (occurrence: None)
  Receive Date: 20090529
  Receipt Date: 20090519
  Transmission Date: 20091009
  Serious: Yes (Hospitalization)
  Sender: FDA-Public Use
  Company Number: CN-ROCHE-633664

PATIENT
  Sex: Female
  Weight: 44.5 kg

DRUGS (5)
  1. CELLCEPT [Suspect]
     Indication: RENAL TRANSPLANT
     Dosage: IN THE MORNING THE DOSE WAS 0.25 G OR 0.5 G BY TURNS AND AT NIGHT THE DOSE WAS 0.5 G ALL ALONG.
     Route: 048
     Dates: start: 20030509
  2. SANDIMMUNE [Concomitant]
     Indication: RENAL TRANSPLANT
     Dosage: MANUFACTURED BY NORVATIS.
     Route: 048
     Dates: start: 20030509, end: 20051229
  3. PROGRAF [Concomitant]
     Indication: RENAL TRANSPLANT
     Dosage: 2.5 MG IN THE MORNING AND 3 MG AT NIGHT. MANUFACTURED BY FUJISAWA GMBH.
     Route: 048
     Dates: start: 20051230
  4. PREDNISONE [Concomitant]
     Indication: RENAL TRANSPLANT
     Route: 048
     Dates: start: 20030509
  5. HORMONE [Concomitant]
     Dates: start: 20051230

REACTIONS (2)
  - PROTEIN URINE PRESENT [None]
  - TRANSPLANT REJECTION [None]
